FAERS Safety Report 6366200-9 (Version None)
Quarter: 2009Q3

REPORT INFORMATION
  Report Type: 
  Country: None (occurrence: None)
  Receive Date: 20090915
  Receipt Date: 20090901
  Transmission Date: 20100115
  Serious: Yes (Disabling)
  Sender: FDA-Public Use
  Company Number: 1000008749

PATIENT
  Sex: Male

DRUGS (5)
  1. ESCITALOPRAM [Suspect]
     Indication: AGORAPHOBIA
     Dosage: 5 MG (5 MG, 1 IN 1 D), ORAL
     Route: 048
  2. ESCITALOPRAM [Suspect]
     Indication: ANXIETY
     Dosage: 5 MG (5 MG, 1 IN 1 D), ORAL
     Route: 048
  3. ESCITALOPRAM [Suspect]
     Indication: DEPRESSION
     Dosage: 5 MG (5 MG, 1 IN 1 D), ORAL
     Route: 048
  4. ALPRAZOLAM [Suspect]
     Indication: DEPRESSION
     Dosage: 3 MG (0,5 MG, 6 IN 1 D), ORAL
     Route: 048
     Dates: start: 20060101
  5. LEXOMIL [Concomitant]

REACTIONS (3)
  - PRURITUS GENERALISED [None]
  - SKIN HAEMORRHAGE [None]
  - SOMNOLENCE [None]
